FAERS Safety Report 9035734 (Version 1)
Quarter: 2013Q1

REPORT INFORMATION
  Report Type: Report from Study
  Country: US (occurrence: US)
  Receive Date: 20130129
  Receipt Date: 20130129
  Transmission Date: 20140127
  Serious: No
  Sender: FDA-Public Use
  Company Number: US-ABBOTT-12P-163-0920980-00

PATIENT
  Age: 46 Year
  Sex: Female

DRUGS (9)
  1. HUMIRA 40 MG/0.8 ML PEN [Suspect]
     Indication: CROHN^S DISEASE
     Dosage: LOADING DOSE
     Dates: start: 20120402
  2. CIPRO [Concomitant]
     Indication: FISTULA
  3. FLAGYL [Concomitant]
     Indication: FISTULA
  4. LOMOTIL [Concomitant]
     Indication: PRODUCT USED FOR UNKNOWN INDICATION
  5. IMODIUM [Concomitant]
     Indication: PRODUCT USED FOR UNKNOWN INDICATION
  6. B12 [Concomitant]
     Indication: VITAMIN B12 DEFICIENCY
     Dosage: MONTHLY
     Route: 030
  7. B12 [Concomitant]
     Indication: ILEECTOMY
  8. PANTOPRAZOLE SODIUM [Concomitant]
     Indication: PRODUCT USED FOR UNKNOWN INDICATION
     Dosage: DAILY
  9. IRON [Concomitant]
     Indication: ANAEMIA

REACTIONS (1)
  - Injection site pain [Recovered/Resolved]
